FAERS Safety Report 6620619-7 (Version None)
Quarter: 2010Q1

REPORT INFORMATION
  Report Type: 
  Country: None (occurrence: None)
  Receive Date: 20100309
  Receipt Date: 20100302
  Transmission Date: 20100710
  Serious: Yes (Other)
  Sender: FDA-Public Use
  Company Number: US-PFIZER INC-2010027507

PATIENT

DRUGS (1)
  1. TOVIAZ [Suspect]

REACTIONS (1)
  - BLOOD ALKALINE PHOSPHATASE INCREASED [None]
